FAERS Safety Report 10564504 (Version 1)
Quarter: 2014Q4

REPORT INFORMATION
  Report Type: Spontaneous
  Country: US (occurrence: US)
  Receive Date: 20141104
  Receipt Date: 20141104
  Transmission Date: 20150529
  Serious: No
  Sender: FDA-Public Use
  Company Number: US-MALLINCKRODT-T201402055

PATIENT
  Age: 32 Year
  Sex: Male

DRUGS (2)
  1. ROXICODONE [Concomitant]
     Active Substance: OXYCODONE HYDROCHLORIDE
     Indication: BREAKTHROUGH PAIN
     Dosage: 30 MG, 4 QD
     Route: 048
  2. FENTANYL TRANSDERMAL SYSTEM [Suspect]
     Active Substance: FENTANYL
     Indication: PAIN
     Dosage: 75 UG/HR, 1 Q3 DAYS
     Route: 062
     Dates: start: 20140324, end: 20140324

REACTIONS (5)
  - Application site erythema [Not Recovered/Not Resolved]
  - Product quality issue [None]
  - Incorrect drug administration duration [Recovered/Resolved]
  - Application site pruritus [Recovered/Resolved]
  - Application site rash [Recovered/Resolved]

NARRATIVE: CASE EVENT DATE: 20140324
